FAERS Safety Report 20604231 (Version 1)
Quarter: 2022Q1

REPORT INFORMATION
  Report Type: Spontaneous
  Country: US (occurrence: US)
  Receive Date: 20220316
  Receipt Date: 20220316
  Transmission Date: 20220423
  Serious: Yes (Hospitalization, Other)
  Sender: FDA-Public Use
  Company Number: US-SA-2022SA089995

PATIENT
  Age: 42 Year
  Sex: Male

DRUGS (2)
  1. ELOCTATE [Suspect]
     Active Substance: (1-743)-(1638-2332)-BLOOD-COAGULATION FACTOR VIII (SYNTHETIC HUMAN) FUSION PROTEIN WITH IMMUNOGLOBUL
     Indication: Haemorrhage
     Dosage: 5000 U, TWICE WEEKLY EVERY MON AND THUR AND EVERY 24 HOURS PRN
     Route: 042
  2. ELOCTATE [Suspect]
     Active Substance: (1-743)-(1638-2332)-BLOOD-COAGULATION FACTOR VIII (SYNTHETIC HUMAN) FUSION PROTEIN WITH IMMUNOGLOBUL
     Indication: Haemorrhage
     Dosage: 5000 U, TWICE WEEKLY EVERY MON AND THUR AND EVERY 24 HOURS PRN
     Route: 042

REACTIONS (2)
  - Haemorrhage [Unknown]
  - Road traffic accident [Unknown]

NARRATIVE: CASE EVENT DATE: 20220305
